FAERS Safety Report 4295761-9 (Version None)
Quarter: 2004Q1

REPORT INFORMATION
  Report Type: 
  Country: None (occurrence: None)
  Receive Date: 20040212
  Receipt Date: 20030805
  Transmission Date: 20041129
  Serious: Yes (Other)
  Sender: FDA-Public Use
  Company Number: PHEH2003US06975

PATIENT
  Age: 9 Year
  Sex: Male

DRUGS (1)
  1. TEGRETOL [Suspect]
     Dosage: 12 DOSES, ORAL
     Route: 048

REACTIONS (2)
  - CONVULSION [None]
  - MEDICATION ERROR [None]
